FAERS Safety Report 11958637 (Version 2)
Quarter: 2016Q2

REPORT INFORMATION
  Report Type: Spontaneous
  Country: AU (occurrence: AU)
  Receive Date: 20160126
  Receipt Date: 20160427
  Transmission Date: 20160815
  Serious: Yes (Other)
  Sender: FDA-Public Use
  Company Number: AU-009507513-1601AUT006763

PATIENT
  Sex: Male

DRUGS (3)
  1. KEYTRUDA [Suspect]
     Active Substance: PEMBROLIZUMAB
     Dosage: UNK/THE PATIENT RESPONDED CLINICALLY TO ONE DOSE.
  2. KEYTRUDA [Suspect]
     Active Substance: PEMBROLIZUMAB
     Indication: MALIGNANT MELANOMA
     Dosage: ONE DOSE
     Dates: start: 20150730, end: 2015
  3. IPILIMUMAB [Concomitant]
     Active Substance: IPILIMUMAB
     Dosage: INDUCTION COURSE; UNK

REACTIONS (2)
  - Disease progression [Unknown]
  - Diarrhoea [Recovered/Resolved]

NARRATIVE: CASE EVENT DATE: 2015
